FAERS Safety Report 16652138 (Version 4)
Quarter: 2019Q3

REPORT INFORMATION
  Report Type: Spontaneous
  Country: US (occurrence: US)
  Receive Date: 20190731
  Receipt Date: 20190911
  Transmission Date: 20191004
  Serious: No
  Sender: FDA-Public Use
  Company Number: US-PFIZER INC-2019326350

PATIENT
  Age: 88 Year
  Sex: Female
  Weight: 112 kg

DRUGS (12)
  1. LYRICA [Suspect]
     Active Substance: PREGABALIN
     Indication: PAIN
     Dosage: 50 MG, 3X/DAY
  2. HYDROCODONE BITARTRATE AND ACETAMINOPHEN [Concomitant]
     Active Substance: ACETAMINOPHEN\HYDROCODONE BITARTRATE
     Dosage: UNK (5-325 MG)
     Dates: start: 201105
  3. LYRICA [Suspect]
     Active Substance: PREGABALIN
     Indication: NEURALGIA
  4. HYDROCODONE BITARTRATE AND ACETAMINOPHEN [Concomitant]
     Active Substance: ACETAMINOPHEN\HYDROCODONE BITARTRATE
     Dosage: UNK, [HYDROCODONE BITARTRATE: 10 MG/ACETAMINOPHEN: 325 MG]
     Dates: start: 2000
  5. LOSARTAN POTASSIUM ACCORD [Concomitant]
     Dosage: 50 MG, UNK
     Dates: start: 2017
  6. LOSARTAN POTASSIUM ACCORD [Concomitant]
     Dosage: 50 MG, UNK
     Dates: start: 201810
  7. LYRICA [Suspect]
     Active Substance: PREGABALIN
     Indication: FIBROMYALGIA
     Dosage: UNK
  8. HYDROCODONE BITARTRATE AND ACETAMINOPHEN [Concomitant]
     Active Substance: ACETAMINOPHEN\HYDROCODONE BITARTRATE
     Dosage: UNK, [HYDROCODONE BITARTRATE: 10 MG/ACETAMINOPHEN: 325 MG]
     Dates: start: 20190630
  9. FUROSEMIDE. [Concomitant]
     Active Substance: FUROSEMIDE
     Dosage: 40 MG, UNK
     Dates: start: 2000
  10. FUROSEMIDE. [Concomitant]
     Active Substance: FUROSEMIDE
     Dosage: 40 MG, UNK
     Dates: start: 201105
  11. LYRICA [Suspect]
     Active Substance: PREGABALIN
     Indication: FATIGUE
  12. HYDROCODONE BITARTRATE AND ACETAMINOPHEN [Concomitant]
     Active Substance: ACETAMINOPHEN\HYDROCODONE BITARTRATE
     Dosage: UNK (5-325 MG)
     Dates: start: 2000

REACTIONS (1)
  - Drug ineffective [Not Recovered/Not Resolved]
